FAERS Safety Report 5531961-5 (Version None)
Quarter: 2007Q4

REPORT INFORMATION
  Report Type: 
  Country: None (occurrence: None)
  Receive Date: 20071203
  Receipt Date: 20071122
  Transmission Date: 20080405
  Serious: Yes (Hospitalization)
  Sender: FDA-Public Use
  Company Number: ES-ELI_LILLY_AND_COMPANY-ES200711005335

PATIENT
  Age: 80 Year
  Sex: Female

DRUGS (3)
  1. FORTEO [Suspect]
     Indication: OSTEOPOROSIS
     Dosage: 20 UG, DAILY (1/D)
     Route: 058
     Dates: start: 20070901, end: 20071107
  2. XICIL [Concomitant]
     Indication: ARTHRITIS
  3. CALCIUM [Concomitant]

REACTIONS (3)
  - FALL [None]
  - SPINAL FRACTURE [None]
  - SYNCOPE [None]
